FAERS Safety Report 9199453 (Version 3)
Quarter: 2014Q2

REPORT INFORMATION
  Report Type: Spontaneous
  Country: US (occurrence: US)
  Receive Date: 20130329
  Receipt Date: 20140611
  Transmission Date: 20141212
  Serious: No
  Sender: FDA-Public Use
  Company Number: US-009507513-1303USA011174

PATIENT
  Sex: Male
  Weight: 59.41 kg

DRUGS (3)
  1. PROPECIA [Suspect]
     Indication: ALOPECIA
     Dosage: UNK
     Route: 048
     Dates: start: 199806, end: 199906
  2. PROSCAR [Suspect]
     Indication: ANDROGENETIC ALOPECIA
     Dosage: UNK
     Route: 048
     Dates: start: 1998, end: 1999
  3. FINASTERIDE [Suspect]
     Indication: ALOPECIA
     Dosage: UNK
     Dates: start: 199806, end: 199906

REACTIONS (7)
  - Cognitive disorder [Not Recovered/Not Resolved]
  - Drug administration error [Unknown]
  - Back injury [Unknown]
  - Nasopharyngitis [Unknown]
  - Sexual dysfunction [Not Recovered/Not Resolved]
  - Erectile dysfunction [Unknown]
  - Libido decreased [Unknown]
